FAERS Safety Report 20739466 (Version 1)
Quarter: 2022Q2

REPORT INFORMATION
  Report Type: Report from Study
  Country: FR (occurrence: None)
  Receive Date: 20220422
  Receipt Date: 20220422
  Transmission Date: 20220721
  Serious: Yes (Hospitalization)
  Sender: FDA-Public Use
  Company Number: 2022A153558

PATIENT
  Age: 872 Month
  Sex: Male
  Weight: 85 kg

DRUGS (4)
  1. EVUSHELD [Suspect]
     Active Substance: CILGAVIMAB\TIXAGEVIMAB
     Indication: Prophylaxis
     Dosage: (TIXAGEVIMAB 150 MG/CILGAVIMAB 150 MG)
     Route: 065
     Dates: start: 20220124, end: 20220213
  2. PREDNISONE [Concomitant]
     Active Substance: PREDNISONE
     Route: 065
  3. PROGRAF [Concomitant]
     Active Substance: TACROLIMUS
     Route: 065
  4. CERTICAN [Concomitant]
     Active Substance: EVEROLIMUS
     Route: 065

REACTIONS (1)
  - COVID-19 [Unknown]

NARRATIVE: CASE EVENT DATE: 20220212
